FAERS Safety Report 6382696-0 (Version None)
Quarter: 2009Q3

REPORT INFORMATION
  Report Type: 
  Country: None (occurrence: None)
  Receive Date: 20090930
  Receipt Date: 20090917
  Transmission Date: 20100115
  Serious: Yes (Other)
  Sender: FDA-Public Use
  Company Number: GB-MYLANLABS-2009S1016535

PATIENT
  Age: 23 Year
  Sex: Male

DRUGS (4)
  1. ONDANSETRON [Suspect]
     Indication: DRUG USE FOR UNKNOWN INDICATION
     Route: 042
     Dates: start: 20090805, end: 20090805
  2. FENTANYL [Concomitant]
     Indication: ANAESTHESIA
     Dates: start: 20090805
  3. HARTMANN'S SOLUTION [Concomitant]
     Indication: DRUG USE FOR UNKNOWN INDICATION
     Route: 042
     Dates: start: 20090805
  4. PROPOFOL [Concomitant]
     Indication: ANAESTHESIA
     Dates: start: 20090805

REACTIONS (3)
  - CONVULSION [None]
  - HYPERSENSITIVITY [None]
  - LOSS OF CONSCIOUSNESS [None]
